FAERS Safety Report 21530491 (Version 1)
Quarter: 2022Q4

REPORT INFORMATION
  Report Type: Spontaneous
  Country: US (occurrence: None)
  Receive Date: 20221028
  Receipt Date: 20221028
  Transmission Date: 20230113
  Serious: Yes (Other)
  Sender: FDA-Public Use
  Company Number: None

PATIENT

DRUGS (1)
  1. LUMASON [Suspect]
     Active Substance: SULFUR HEXAFLUORIDE

REACTIONS (13)
  - Hypersensitivity [None]
  - Paraesthesia [None]
  - Palpitations [None]
  - Chest pain [None]
  - Nausea [None]
  - Headache [None]
  - Erythema [None]
  - Pharyngeal paraesthesia [None]
  - Hyperhidrosis [None]
  - Dizziness [None]
  - Presyncope [None]
  - Vomiting [None]
  - Hypotension [None]
